FAERS Safety Report 9826818 (Version 2)
Quarter: 2013Q4

REPORT INFORMATION
  Report Type: Spontaneous
  Country: GB (occurrence: None)
  Receive Date: 20131112
  Receipt Date: 20131113
  Transmission Date: 20140711
  Serious: Yes (Hospitalization)
  Sender: FDA-Public Use
  Company Number: E2B_00001220

PATIENT
  Age: 55 Year
  Sex: Male

DRUGS (7)
  1. LISINOPRIL [Suspect]
     Indication: HYPERTENSION
     Route: 048
     Dates: end: 20130603
  2. IRBESARTAN [Suspect]
     Indication: HYPERTENSION
     Route: 048
     Dates: start: 20130620, end: 20130803
  3. ASPIRIN [Concomitant]
  4. DILTIAZEM [Concomitant]
  5. FUROSEMIDE [Concomitant]
  6. SIMVASTATIN (SIMVASTATIN) [Concomitant]
  7. DOXAZOSIN [Concomitant]

REACTIONS (1)
  - Hyperkalaemia [None]
